FAERS Safety Report 6516740-4 (Version None)
Quarter: 2009Q4

REPORT INFORMATION
  Report Type: 
  Country: None (occurrence: None)
  Receive Date: 20091223
  Receipt Date: 20091215
  Transmission Date: 20100525
  Serious: Yes (Other)
  Sender: FDA-Public Use
  Company Number: CHPA2009AU23738

PATIENT
  Age: 50 Year
  Sex: Female

DRUGS (4)
  1. QUITX GUM (NCH) [Suspect]
     Indication: SMOKING CESSATION THERAPY
     Dosage: 21 MG, QD
     Route: 062
     Dates: start: 20090801, end: 20090907
  2. NATRILIX [Concomitant]
     Dosage: UNK, UNK
     Route: 065
  3. LOSEC                                   /CAN/ [Concomitant]
     Dosage: UNK, UNK
     Route: 065
  4. MIRTAZAPINE [Concomitant]
     Dosage: UNK, UNK
     Route: 065

REACTIONS (4)
  - BALANCE DISORDER [None]
  - DIZZINESS [None]
  - GAIT DISTURBANCE [None]
  - WALKING AID USER [None]
